FAERS Safety Report 8246923-7 (Version None)
Quarter: 2012Q1

REPORT INFORMATION
  Report Type: 
  Country: None (occurrence: None)
  Receive Date: 20120330
  Receipt Date: 20120319
  Transmission Date: 20120608
  Serious: Yes (Hospitalization)
  Sender: FDA-Public Use
  Company Number: JP-NOVOPROD-341543

PATIENT
  Age: 73 Year
  Sex: Male
  Weight: 52 kg

DRUGS (9)
  1. NOVOLIN N [Suspect]
     Indication: TYPE 2 DIABETES MELLITUS
     Dosage: UNK
     Route: 058
     Dates: start: 20110506
  2. HUMALOG [Concomitant]
     Dosage: UNK
     Route: 058
     Dates: start: 20100216, end: 20110304
  3. NOVORAPID CHU FLEXPEN [Suspect]
     Indication: TYPE 2 DIABETES MELLITUS
     Dosage: UNK
     Route: 058
     Dates: start: 20100212, end: 20110506
  4. LANTUS [Concomitant]
     Dosage: UNK
     Route: 058
     Dates: start: 20110304, end: 20110306
  5. NOVOLIN R [Suspect]
     Indication: TYPE 2 DIABETES MELLITUS
     Dosage: UNK
     Route: 058
     Dates: start: 20110506
  6. HUMULIN N [Concomitant]
  7. URSO                               /00465701/ [Concomitant]
  8. CANDESARTAN CILEXETIL [Concomitant]
  9. ADALAT CC [Concomitant]

REACTIONS (3)
  - HYPERGLYCAEMIA [None]
  - HYPOGLYCAEMIA [None]
  - ANTI-INSULIN ANTIBODY POSITIVE [None]
